FAERS Safety Report 11849728 (Version 1)
Quarter: 2015Q4

REPORT INFORMATION
  Report Type: Spontaneous
  Country: CA (occurrence: CA)
  Receive Date: 20151218
  Receipt Date: 20151218
  Transmission Date: 20160305
  Serious: Yes (Death)
  Sender: FDA-Public Use
  Company Number: CA-TEVA-618962ACC

PATIENT
  Age: 48 Year
  Sex: Male
  Weight: 109 kg

DRUGS (13)
  1. METFORMIN [Suspect]
     Active Substance: METFORMIN HYDROCHLORIDE
     Indication: DIABETES MELLITUS
     Route: 048
  2. DIPHENHYDRAMINE. [Suspect]
     Active Substance: DIPHENHYDRAMINE
     Indication: ANTIALLERGIC THERAPY
     Route: 065
  3. PAROXETINE [Concomitant]
     Active Substance: PAROXETINE\PAROXETINE HYDROCHLORIDE
  4. TYLENOL EXTRA STRENGTH EZ [Concomitant]
     Active Substance: ACETAMINOPHEN
  5. TYLENOL WITH CODEINE [Concomitant]
     Active Substance: ACETAMINOPHEN\CODEINE PHOSPHATE
  6. ASA [Concomitant]
     Active Substance: ASPIRIN
  7. QUETIAPINE [Concomitant]
     Active Substance: QUETIAPINE
  8. NYSTATIN. [Concomitant]
     Active Substance: NYSTATIN
  9. ATORVASTATIN [Concomitant]
     Active Substance: ATORVASTATIN
  10. CALCIUM CARBONATE. [Concomitant]
     Active Substance: CALCIUM CARBONATE
  11. DIMENHYDRINATE. [Concomitant]
     Active Substance: DIMENHYDRINATE
  12. TEMAZEPAM. [Concomitant]
     Active Substance: TEMAZEPAM
  13. ALPRAZOLAM. [Concomitant]
     Active Substance: ALPRAZOLAM

REACTIONS (1)
  - Death [Fatal]
